FAERS Safety Report 7799970-3 (Version None)
Quarter: 2011Q4

REPORT INFORMATION
  Report Type: 
  Country: None (occurrence: None)
  Receive Date: 20111006
  Receipt Date: 20110926
  Transmission Date: 20120403
  Serious: Yes (Other)
  Sender: FDA-Public Use
  Company Number: US-JNJFOC-20110910592

PATIENT
  Sex: Female
  Weight: 81.65 kg

DRUGS (3)
  1. LIALDA [Concomitant]
     Indication: COLITIS ULCERATIVE
     Route: 048
     Dates: start: 20100101
  2. REMICADE [Suspect]
     Indication: COLITIS ULCERATIVE
     Route: 042
     Dates: start: 20110825, end: 20110901
  3. MERCAPTOPURINE [Concomitant]
     Indication: COLITIS ULCERATIVE
     Dosage: 50MG TABLET, 1 1/2 TABLETS PER DAY
     Route: 048
     Dates: start: 20100101

REACTIONS (3)
  - MUSCULOSKELETAL STIFFNESS [None]
  - JOINT STIFFNESS [None]
  - DEHYDRATION [None]
